FAERS Safety Report 24628877 (Version 1)
Quarter: 2024Q4

REPORT INFORMATION
  Report Type: Spontaneous
  Country: CN (occurrence: CN)
  Receive Date: 20241118
  Receipt Date: 20241118
  Transmission Date: 20250115
  Serious: Yes (Hospitalization, Disabling)
  Sender: BEIGENE
  Company Number: CN-BEIGENE-BGN-2024-018000

PATIENT

DRUGS (1)
  1. TISLELIZUMAB [Suspect]
     Active Substance: TISLELIZUMAB
     Indication: Adenosquamous cell lung cancer
     Dosage: 200 MILLIGRAM, Q3WK
     Route: 041
     Dates: start: 20240627

REACTIONS (1)
  - Liver injury [Unknown]

NARRATIVE: CASE EVENT DATE: 20240930
